FAERS Safety Report 11187411 (Version 4)
Quarter: 2020Q2

REPORT INFORMATION
  Report Type: Spontaneous
  Country: US (occurrence: US)
  Receive Date: 20150615
  Receipt Date: 20200529
  Transmission Date: 20200713
  Serious: Yes (Death, Hospitalization, Other)
  Sender: FDA-Public Use
  Company Number: US-JNJFOC-20150512872

PATIENT
  Age: 32 Year
  Sex: Female

DRUGS (8)
  1. XARELTO [Suspect]
     Active Substance: RIVAROXABAN
     Indication: DEEP VEIN THROMBOSIS
     Route: 048
     Dates: start: 20140509, end: 20140517
  2. NEURONTIN [Concomitant]
     Active Substance: GABAPENTIN
     Route: 065
     Dates: start: 2012
  3. OXYCODONE [Concomitant]
     Active Substance: OXYCODONE
     Route: 065
  4. COGENTIN [Concomitant]
     Active Substance: BENZTROPINE MESYLATE
     Route: 065
  5. RISPERDAL CONSTA [Concomitant]
     Active Substance: RISPERIDONE
     Route: 065
     Dates: start: 2012
  6. ZYPREXA [Concomitant]
     Active Substance: OLANZAPINE
     Route: 065
     Dates: start: 2006
  7. DELZICOL [Concomitant]
     Active Substance: MESALAMINE
     Route: 065
  8. SYNTHROID [Concomitant]
     Active Substance: LEVOTHYROXINE SODIUM
     Route: 065
     Dates: start: 2006

REACTIONS (4)
  - Bipolar disorder [Unknown]
  - Retroperitoneal haematoma [Recovered/Resolved]
  - Blood loss anaemia [Recovered/Resolved]
  - Coagulopathy [Recovered/Resolved]

NARRATIVE: CASE EVENT DATE: 201405
